FAERS Safety Report 6877017-0 (Version None)
Quarter: 2010Q3

REPORT INFORMATION
  Report Type: 
  Country: None (occurrence: None)
  Receive Date: 20100727
  Receipt Date: 20100727
  Transmission Date: 20110219
  Serious: Yes (Other)
  Sender: FDA-Public Use
  Company Number: None

PATIENT
  Age: 90 Year
  Sex: Female
  Weight: 74.8435 kg

DRUGS (1)
  1. NAMENDA [Suspect]
     Indication: DEMENTIA ALZHEIMER'S TYPE
     Dosage: 5 MG DAILY PO
     Route: 048
     Dates: start: 20100705, end: 20100718

REACTIONS (7)
  - AGGRESSION [None]
  - ASOCIAL BEHAVIOUR [None]
  - CONDITION AGGRAVATED [None]
  - CONFUSIONAL STATE [None]
  - CRYING [None]
  - DEMENTIA ALZHEIMER'S TYPE [None]
  - HYPOPHAGIA [None]
